FAERS Safety Report 13661789 (Version 2)
Quarter: 2017Q4

REPORT INFORMATION
  Report Type: Report from Study
  Country: US (occurrence: US)
  Receive Date: 20170616
  Receipt Date: 20171205
  Transmission Date: 20180320
  Serious: Yes (Hospitalization, Other)
  Sender: FDA-Public Use
  Company Number: US-APOPHARMA-2017AP012795

PATIENT
  Sex: Female
  Weight: 34 kg

DRUGS (2)
  1. RANITIDINE. [Concomitant]
     Active Substance: RANITIDINE
     Indication: PRODUCT USED FOR UNKNOWN INDICATION
     Dosage: 2.6 ML, BID
     Route: 065
  2. FERRIPROX [Suspect]
     Active Substance: DEFERIPRONE
     Indication: SPINOCEREBELLAR ATAXIA
     Dosage: 7 MG/KG, TID
     Route: 048
     Dates: start: 20130923, end: 20170423

REACTIONS (1)
  - Epilepsy [Recovered/Resolved with Sequelae]
